FAERS Safety Report 13395285 (Version 1)
Quarter: 2017Q2

REPORT INFORMATION
  Report Type: Spontaneous
  Country: US (occurrence: US)
  Receive Date: 20170403
  Receipt Date: 20170403
  Transmission Date: 20170830
  Serious: No
  Sender: FDA-Public Use
  Company Number: US-PFIZER INC-2017138339

PATIENT
  Sex: Female

DRUGS (1)
  1. XELJANZ XR [Suspect]
     Active Substance: TOFACITINIB CITRATE
     Dosage: 11 MG, 1X/DAY

REACTIONS (11)
  - Joint stiffness [Unknown]
  - Myalgia [Unknown]
  - Arthralgia [Unknown]
  - Erythema [Unknown]
  - Pruritus [Unknown]
  - Muscle spasms [Unknown]
  - Joint swelling [Unknown]
  - Musculoskeletal pain [Unknown]
  - Urticaria [Unknown]
  - Night sweats [Unknown]
  - Asthenia [Unknown]
